FAERS Safety Report 15339889 (Version 1)
Quarter: 2018Q3

REPORT INFORMATION
  Report Type: Spontaneous
  Country: US (occurrence: US)
  Receive Date: 20180827
  Receipt Date: 20180827
  Transmission Date: 20181010
  Serious: No
  Sender: FDA-Public Use
  Company Number: None

PATIENT
  Age: 68 Year
  Sex: Female

DRUGS (1)
  1. COSENTYX [Suspect]
     Active Substance: SECUKINUMAB
     Indication: PSORIASIS
     Route: 058
     Dates: start: 20161116

REACTIONS (5)
  - Chest discomfort [None]
  - Hot flush [None]
  - Dyspnoea [None]
  - Abdominal discomfort [None]
  - Frustration tolerance decreased [None]

NARRATIVE: CASE EVENT DATE: 20180815
